FAERS Safety Report 19489100 (Version 1)
Quarter: 2021Q3

REPORT INFORMATION
  Report Type: Spontaneous
  Country: JP (occurrence: JP)
  Receive Date: 20210703
  Receipt Date: 20210703
  Transmission Date: 20211014
  Serious: Yes (Hospitalization, Other)
  Sender: FDA-Public Use
  Company Number: JP-QUAGEN-2021QUALIT00045

PATIENT
  Age: 44 Year
  Sex: Male

DRUGS (5)
  1. CEFAZOLIN [Interacting]
     Active Substance: CEFAZOLIN
     Indication: SUPPORTIVE CARE
     Route: 065
  2. VANCOMYCIN [Suspect]
     Active Substance: VANCOMYCIN
     Indication: SUPPORTIVE CARE
     Route: 065
  3. AMOXICILLIN + CLAVULANIC ACID [Interacting]
     Active Substance: AMOXICILLIN\CLAVULANIC ACID
     Indication: PNEUMONIA
     Route: 048
  4. AMPICILLIN AND SULBACTAM [Interacting]
     Active Substance: AMPICILLIN SODIUM\SULBACTAM SODIUM
     Indication: SUPPORTIVE CARE
     Route: 065
  5. TRIAMCINOLONE ACETONIDE. [Suspect]
     Active Substance: TRIAMCINOLONE ACETONIDE
     Indication: DERMATITIS CONTACT
     Route: 030

REACTIONS (4)
  - Rib fracture [Unknown]
  - Empyema [Recovering/Resolving]
  - Bone loss [Unknown]
  - Pneumonia [Recovering/Resolving]
